FAERS Safety Report 13666236 (Version 1)
Quarter: 2017Q2

REPORT INFORMATION
  Report Type: Spontaneous
  Country: US (occurrence: US)
  Receive Date: 20170619
  Receipt Date: 20170619
  Transmission Date: 20170830
  Serious: Yes (Hospitalization, Other)
  Sender: FDA-Public Use
  Company Number: US-ROCHE-1183159

PATIENT
  Sex: Female

DRUGS (1)
  1. XELODA [Suspect]
     Active Substance: CAPECITABINE
     Indication: RECTAL CANCER
     Route: 048
     Dates: start: 20121003, end: 20121009

REACTIONS (7)
  - Diarrhoea [Recovering/Resolving]
  - Rash [Recovered/Resolved]
  - Oral candidiasis [Recovered/Resolved]
  - Skin exfoliation [Recovered/Resolved]
  - Dehydration [Recovered/Resolved]
  - Rash [Recovered/Resolved]
  - Deep vein thrombosis [Unknown]

NARRATIVE: CASE EVENT DATE: 20121004
